FAERS Safety Report 19971622 (Version 1)
Quarter: 2021Q4

REPORT INFORMATION
  Report Type: Spontaneous
  Country: BE (occurrence: BE)
  Receive Date: 20211020
  Receipt Date: 20211020
  Transmission Date: 20220303
  Serious: Yes (Other)
  Sender: FDA-Public Use
  Company Number: BE-UCBSA-2021046437

PATIENT
  Sex: Male

DRUGS (5)
  1. KEPPRA [Suspect]
     Active Substance: LEVETIRACETAM
     Indication: Epilepsy
     Dosage: 2X500MG PER DAY
     Dates: start: 201607
  2. KEPPRA [Suspect]
     Active Substance: LEVETIRACETAM
     Dosage: 750MG
     Dates: start: 2018
  3. KEPPRA [Suspect]
     Active Substance: LEVETIRACETAM
     Dosage: DECREASING THE DOSES BY 250 MG EACH WEEK
     Dates: start: 201907
  4. KEPPRA [Suspect]
     Active Substance: LEVETIRACETAM
     Dosage: 750MG
     Dates: start: 2020
  5. KEPPRA [Suspect]
     Active Substance: LEVETIRACETAM
     Dosage: 1000MG

REACTIONS (7)
  - Seizure [Unknown]
  - Petit mal epilepsy [Unknown]
  - Decreased interest [Unknown]
  - Asthenia [Unknown]
  - Hypersomnia [Unknown]
  - Personality change [Unknown]
  - Product dose omission issue [Unknown]

NARRATIVE: CASE EVENT DATE: 20180121
